FAERS Safety Report 4601704-8 (Version None)
Quarter: 2005Q1

REPORT INFORMATION
  Report Type: 
  Country: None (occurrence: None)
  Receive Date: 20050131
  Receipt Date: 20041008
  Transmission Date: 20050727
  Serious: No
  Sender: FDA-Public Use
  Company Number: 200417278US

PATIENT
  Age: 29 Year
  Sex: Male
  Weight: 93.2 kg

DRUGS (1)
  1. KETEK [Suspect]
     Indication: SINUSITIS
     Dosage: 400 (2 TABLETS X 5 DAYS) MG QD PO
     Route: 048

REACTIONS (1)
  - VISION BLURRED [None]
